FAERS Safety Report 17588320 (Version 1)
Quarter: 2020Q1

REPORT INFORMATION
  Report Type: Spontaneous
  Country: US (occurrence: US)
  Receive Date: 20200326
  Receipt Date: 20200326
  Transmission Date: 20200409
  Serious: No
  Sender: FDA-Public Use
  Company Number: US-ALEXION PHARMACEUTICALS INC.-A202003575

PATIENT
  Age: 32 Year
  Sex: Female

DRUGS (1)
  1. SOLIRIS [Suspect]
     Active Substance: ECULIZUMAB
     Indication: PAROXYSMAL NOCTURNAL HAEMOGLOBINURIA
     Dosage: 50 MG, Q2W
     Route: 042
     Dates: start: 2014

REACTIONS (4)
  - Fatigue [Unknown]
  - Therapeutic response delayed [Unknown]
  - Scab [Unknown]
  - Exposure during pregnancy [Recovered/Resolved]
